FAERS Safety Report 17763231 (Version 1)
Quarter: 2020Q2

REPORT INFORMATION
  Report Type: Spontaneous
  Country: FR (occurrence: FR)
  Receive Date: 20200509
  Receipt Date: 20200509
  Transmission Date: 20200714
  Serious: Yes (Hospitalization)
  Sender: FDA-Public Use
  Company Number: FR-TEVA-2020-FR-1232311

PATIENT
  Age: 64 Year
  Sex: Female
  Weight: 71 kg

DRUGS (5)
  1. COVERAM [Concomitant]
     Active Substance: AMLODIPINE\PERINDOPRIL
     Route: 048
     Dates: start: 20100101, end: 20191210
  2. TAHOR [Concomitant]
     Active Substance: ATORVASTATIN CALCIUM
     Route: 048
     Dates: start: 20100101, end: 20191210
  3. CISPLATINE [Suspect]
     Active Substance: CISPLATIN
     Indication: LUNG ADENOCARCINOMA
     Dosage: C1 12/13/2019; C2 06/01/2019; C3 01/27/2020 (10% REDUCTION); C4 02/17/2020 (20% REDUCTION), 75 MG/M2
     Route: 041
     Dates: start: 20191213, end: 20200217
  4. PEMETREXED. [Suspect]
     Active Substance: PEMETREXED
     Indication: LUNG ADENOCARCINOMA
     Dosage: C1 13/12/2019; C2 06/01/2019; C3 27/01/2020; C4 17/02/2020 500MG/M2
     Route: 041
     Dates: start: 20191213, end: 20200217
  5. PEMBROLIZUMAB. [Suspect]
     Active Substance: PEMBROLIZUMAB
     Indication: LUNG ADENOCARCINOMA
     Dosage: C1 13/12/2019; C2 06/01/2019; C3 27/01/2020; C4 17/02/2020 200 MG
     Route: 041

REACTIONS (2)
  - Pancytopenia [Unknown]
  - Renal tubular necrosis [Not Recovered/Not Resolved]

NARRATIVE: CASE EVENT DATE: 20200309
